FAERS Safety Report 5874579-7 (Version None)
Quarter: 2008Q3

REPORT INFORMATION
  Report Type: 
  Country: None (occurrence: None)
  Receive Date: 20080905
  Receipt Date: 20080905
  Transmission Date: 20090109
  Serious: Yes (Other)
  Sender: FDA-Public Use
  Company Number: None

PATIENT
  Age: 43 Year
  Sex: Female
  Weight: 65 kg

DRUGS (7)
  1. KALETRA [Suspect]
     Indication: HIV INFECTION
     Dosage: 500 MG BID PO
     Route: 048
     Dates: start: 20080130
  2. EMTRIVA [Suspect]
     Indication: HIV INFECTION
     Dosage: 200 MG OD PO
     Route: 048
     Dates: start: 20080130
  3. VIREAD [Suspect]
     Indication: HIV INFECTION
     Dosage: 300 MG OD PO
     Route: 048
     Dates: start: 20080130, end: 20080604
  4. RETROVIR [Suspect]
     Indication: HIV INFECTION
     Dosage: 300 MG BID PO
     Route: 048
     Dates: start: 20080605, end: 20080729
  5. MULTI-VITAMINS [Concomitant]
  6. BACTRIM [Concomitant]
  7. MODURETIC 5-50 [Concomitant]

REACTIONS (7)
  - ABORTION SPONTANEOUS [None]
  - BACK PAIN [None]
  - DIARRHOEA [None]
  - DRUG EXPOSURE DURING PREGNANCY [None]
  - PLATELET COUNT INCREASED [None]
  - PREGNANCY [None]
  - VAGINAL HAEMORRHAGE [None]
